FAERS Safety Report 14563705 (Version 1)
Quarter: 2018Q1

REPORT INFORMATION
  Report Type: Spontaneous
  Country: US (occurrence: US)
  Receive Date: 20180222
  Receipt Date: 20180222
  Transmission Date: 20180509
  Serious: Yes (Disabling, Other)
  Sender: FDA-Public Use
  Company Number: US-REGENERON PHARMACEUTICALS, INC.-2017-29652

PATIENT

DRUGS (2)
  1. EYLEA [Suspect]
     Active Substance: AFLIBERCEPT
     Indication: AGE-RELATED MACULAR DEGENERATION
     Dosage: 2 MG, OD
     Route: 031
     Dates: start: 20171212, end: 201712
  2. EYLEA [Suspect]
     Active Substance: AFLIBERCEPT
     Indication: CHOROIDAL NEOVASCULARISATION
     Dosage: 2 MG, Q8WK OD
     Route: 031
     Dates: start: 20161111, end: 20171212

REACTIONS (6)
  - Hypopyon [Recovered/Resolved]
  - Blindness unilateral [Unknown]
  - Uveitis [Recovered/Resolved]
  - Intraocular pressure increased [Unknown]
  - Vitreal cells [Recovered/Resolved]
  - Anterior chamber cell [Recovered/Resolved]

NARRATIVE: CASE EVENT DATE: 20171213
